FAERS Safety Report 6222581-8 (Version None)
Quarter: 2009Q2

REPORT INFORMATION
  Report Type: 
  Country: None (occurrence: None)
  Receive Date: 20090611
  Receipt Date: 20090609
  Transmission Date: 20091009
  Serious: Yes (Hospitalization)
  Sender: FDA-Public Use
  Company Number: CA-JNJFOC-20090601545

PATIENT
  Age: 84 Year
  Sex: Male

DRUGS (3)
  1. REMINYL ER [Suspect]
     Route: 048
  2. REMINYL ER [Suspect]
     Indication: DRUG USE FOR UNKNOWN INDICATION
     Route: 048
  3. LORAZEPAM [Concomitant]
     Indication: ALCOHOL WITHDRAWAL SYNDROME
     Route: 065

REACTIONS (4)
  - CONFUSIONAL STATE [None]
  - DISORIENTATION [None]
  - MEDICATION ERROR [None]
  - MYOCARDIAL INFARCTION [None]
